FAERS Safety Report 7013858-7 (Version None)
Quarter: 2010Q3

REPORT INFORMATION
  Report Type: 
  Country: None (occurrence: None)
  Receive Date: 20100924
  Receipt Date: 20100924
  Transmission Date: 20110219
  Serious: Yes (Hospitalization)
  Sender: FDA-Public Use
  Company Number: US-ABBOTT-10P-163-0670622-00

PATIENT
  Sex: Male
  Weight: 105.33 kg

DRUGS (1)
  1. KALETRA [Suspect]
     Indication: HIV TEST POSITIVE
     Dates: start: 20050101

REACTIONS (1)
  - GUILLAIN-BARRE SYNDROME [None]
